FAERS Safety Report 6500365-0 (Version None)
Quarter: 2009Q4

REPORT INFORMATION
  Report Type: 
  Country: None (occurrence: None)
  Receive Date: 20091216
  Receipt Date: 20091203
  Transmission Date: 20100525
  Serious: Yes (Hospitalization)
  Sender: FDA-Public Use
  Company Number: PHNU2005DE03140

PATIENT
  Sex: Male
  Weight: 79.9 kg

DRUGS (6)
  1. ERL 080A ERL+TAB [Suspect]
     Indication: RENAL TRANSPLANT
     Dosage: 1440 MG DAILY
     Route: 048
     Dates: start: 20050321
  2. ERL 080A ERL+TAB [Suspect]
     Dosage: 180 MG DAILY
     Route: 048
     Dates: start: 20050811, end: 20050906
  3. TAVANIC [Suspect]
     Route: 048
     Dates: start: 20050822, end: 20050823
  4. VANCOMYCIN [Suspect]
     Indication: CHOLECYSTITIS
     Dates: start: 20050901
  5. ZIENAM [Concomitant]
     Indication: CHOLECYSTITIS
     Dates: start: 20050901
  6. IMODIUM [Concomitant]
     Indication: DIARRHOEA

REACTIONS (9)
  - CHOLECYSTECTOMY [None]
  - CHOLECYSTITIS [None]
  - DEHYDRATION [None]
  - DIARRHOEA [None]
  - GASTRITIS [None]
  - PNEUMONIA [None]
  - PSEUDOMEMBRANOUS COLITIS [None]
  - RENAL DISORDER [None]
  - RENAL FAILURE ACUTE [None]
